FAERS Safety Report 8282569-2 (Version None)
Quarter: 2012Q2

REPORT INFORMATION
  Report Type: 
  Country: None (occurrence: None)
  Receive Date: 20120413
  Receipt Date: 20120330
  Transmission Date: 20120825
  Serious: Yes (Life-Threatening, Hospitalization)
  Sender: FDA-Public Use
  Company Number: US-AMGEN-USACT2012018771

PATIENT
  Age: 58 Year
  Sex: Male

DRUGS (9)
  1. NORVASC [Concomitant]
     Dosage: 10 MG, QD
  2. METOPROLOL TARTRATE [Concomitant]
     Dosage: 50 MG, BID
  3. CINACALCET HYDROCHLORIDE [Suspect]
     Indication: HYPERPARATHYROIDISM SECONDARY
     Dosage: UNK, QD
     Route: 048
     Dates: start: 20070107
  4. MONOPRIL [Concomitant]
     Dosage: 10 MG, QD
  5. EPOGEN [Concomitant]
  6. CARDURA [Concomitant]
     Dosage: 8 MG, QD
  7. CLONIDINE [Concomitant]
     Dosage: UNK UNK, BID
  8. COUMADIN [Concomitant]
  9. VANCOMYCIN [Concomitant]

REACTIONS (3)
  - HYPERKALAEMIA [None]
  - COAGULOPATHY [None]
  - CARDIAC FAILURE CONGESTIVE [None]
